FAERS Safety Report 5785987-7 (Version None)
Quarter: 2008Q2

REPORT INFORMATION
  Report Type: 
  Country: None (occurrence: None)
  Receive Date: 20080624
  Receipt Date: 20080612
  Transmission Date: 20081010
  Serious: Yes (Other)
  Sender: FDA-Public Use
  Company Number: PHHY2008BR10809

PATIENT
  Sex: Female
  Weight: 56 kg

DRUGS (1)
  1. APRESOLINE [Suspect]
     Indication: HYPERTENSION
     Dosage: 25 MG, 1 TAB IN THE MORNING
     Route: 048
     Dates: start: 20080608

REACTIONS (5)
  - DRUG EXPOSURE DURING PREGNANCY [None]
  - HEADACHE [None]
  - PYREXIA [None]
  - SYNCOPE [None]
  - TACHYCARDIA [None]
